FAERS Safety Report 4335051-9 (Version None)
Quarter: 2004Q2

REPORT INFORMATION
  Report Type: 
  Country: None (occurrence: None)
  Receive Date: 20040408
  Receipt Date: 20040329
  Transmission Date: 20050107
  Serious: Yes (Other)
  Sender: FDA-Public Use
  Company Number: IE-GLAXOSMITHKLINE-B0328334A

PATIENT
  Age: 6 Year
  Sex: Male

DRUGS (1)
  1. AUGMENTIN [Suspect]
     Indication: INFECTION
     Dosage: 5ML PER DAY
     Dates: start: 20031120, end: 20040328

REACTIONS (3)
  - HALLUCINATION [None]
  - PANIC ATTACK [None]
  - SLEEP TERROR [None]
